FAERS Safety Report 7413872-3 (Version None)
Quarter: 2011Q2

REPORT INFORMATION
  Report Type: 
  Country: None (occurrence: None)
  Receive Date: 20110414
  Receipt Date: 20110406
  Transmission Date: 20111010
  Serious: Yes (Other)
  Sender: FDA-Public Use
  Company Number: FI-AMGEN-FINSP2011018843

PATIENT
  Age: 14 Year
  Sex: Female

DRUGS (1)
  1. ENBREL [Suspect]
     Indication: JUVENILE ARTHRITIS
     Dosage: 20 MG, 2X/WEEK
     Dates: start: 20110301

REACTIONS (4)
  - BRONCHIAL DISORDER [None]
  - VISION BLURRED [None]
  - ASTHENIA [None]
  - EYE DISORDER [None]
